FAERS Safety Report 7499766-6 (Version None)
Quarter: 2011Q2

REPORT INFORMATION
  Report Type: 
  Country: None (occurrence: None)
  Receive Date: 20110524
  Receipt Date: 20110516
  Transmission Date: 20111010
  Serious: Yes (Other)
  Sender: FDA-Public Use
  Company Number: US-ROCHE-770452

PATIENT
  Sex: Male
  Weight: 90 kg

DRUGS (11)
  1. FILGRASTIM [Concomitant]
     Indication: NEUTROPENIA
     Route: 058
     Dates: start: 20101206, end: 20101206
  2. FILGRASTIM [Concomitant]
     Route: 058
     Dates: start: 20101229, end: 20110101
  3. OMEPRAZOLE [Concomitant]
     Dosage: 20 MG QAM
     Route: 048
     Dates: start: 20100915
  4. GUAIFENESIN [Concomitant]
     Indication: COUGH
     Dosage: 100/MG/5 ML , EVERY SIX HOURS AS NEEDED.
     Route: 048
     Dates: start: 20101216
  5. MEGESTROL ACETATE [Concomitant]
     Dosage: 200/5MG I TSP BID
     Route: 048
     Dates: start: 20101019
  6. FILGRASTIM [Concomitant]
     Route: 058
     Dates: start: 20110121, end: 20110125
  7. BEVACIZUMAB [Suspect]
     Route: 042
  8. DOCETAXEL [Suspect]
     Route: 042
     Dates: start: 20101014, end: 20110114
  9. CARBOPLATIN [Suspect]
     Route: 042
     Dates: start: 20101014, end: 20110114
  10. GUAIFENESIN [Concomitant]
     Route: 048
     Dates: start: 20100203
  11. PHENYTOIN [Concomitant]
     Route: 048
     Dates: start: 20100727

REACTIONS (1)
  - NEUTROPENIA [None]
